FAERS Safety Report 21467237 (Version 1)
Quarter: 2022Q4

REPORT INFORMATION
  Report Type: Spontaneous
  Country: US (occurrence: US)
  Receive Date: 20221017
  Receipt Date: 20221017
  Transmission Date: 20230113
  Serious: No
  Sender: FDA-Public Use
  Company Number: US-BRISTOL-MYERS SQUIBB COMPANY-2022-122089

PATIENT
  Age: 77 Year
  Sex: Male
  Weight: 94.3 kg

DRUGS (1)
  1. LENALIDOMIDE [Suspect]
     Active Substance: LENALIDOMIDE
     Indication: Myelodysplastic syndrome
     Dosage: DAILY
     Route: 048
     Dates: start: 20220901, end: 20221001

REACTIONS (4)
  - Swelling [Unknown]
  - Pruritus [Unknown]
  - Pain in extremity [Unknown]
  - Pain in extremity [Unknown]
